FAERS Safety Report 8268720-9 (Version None)
Quarter: 2012Q1

REPORT INFORMATION
  Report Type: 
  Country: None (occurrence: None)
  Receive Date: 20120327
  Receipt Date: 20100420
  Transmission Date: 20120608
  Serious: Yes (Other)
  Sender: FDA-Public Use
  Company Number: PHEH2010US00871

PATIENT
  Sex: Male
  Weight: 127 kg

DRUGS (4)
  1. HYDROCHLOROTHIAZIDE [Concomitant]
  2. GLEEVEC [Suspect]
     Indication: CHRONIC MYELOID LEUKAEMIA
     Dosage: 400 MG, QD, ORAL
     Route: 048
     Dates: start: 20020101
  3. ASPIRIN [Concomitant]
  4. CELEXA [Concomitant]

REACTIONS (4)
  - FLUID RETENTION [None]
  - FATIGUE [None]
  - MUSCLE SPASMS [None]
  - WEIGHT INCREASED [None]
